FAERS Safety Report 6335345-1 (Version None)
Quarter: 2009Q3

REPORT INFORMATION
  Report Type: 
  Country: None (occurrence: None)
  Receive Date: 20090831
  Receipt Date: 20090818
  Transmission Date: 20100115
  Serious: Yes (Other)
  Sender: FDA-Public Use
  Company Number: US-ELI_LILLY_AND_COMPANY-US200908004692

PATIENT
  Age: 75 Year
  Sex: Male

DRUGS (1)
  1. CYMBALTA [Suspect]
     Indication: DEPRESSION
     Dosage: 40 MG, UNKNOWN
     Route: 065
     Dates: start: 20090701, end: 20090801

REACTIONS (2)
  - CATARACT [None]
  - VISION BLURRED [None]
